FAERS Safety Report 5065643-3 (Version None)
Quarter: 2006Q3

REPORT INFORMATION
  Report Type: 
  Country: None (occurrence: None)
  Receive Date: 20060714
  Receipt Date: 20060504
  Transmission Date: 20061208
  Serious: No
  Sender: FDA-Public Use
  Company Number: 2006SP002079

PATIENT
  Age: 67 Year
  Sex: Female
  Weight: 104.3273 kg

DRUGS (9)
  1. LUNESTA [Suspect]
     Indication: INSOMNIA
     Dosage: 2 MG;HS;ORAL
     Route: 048
     Dates: start: 20060401, end: 20060501
  2. TYLENOL (CAPLET) [Concomitant]
  3. SIMVASTATIN [Concomitant]
  4. SYNTHROID [Concomitant]
  5. PREVACID [Concomitant]
  6. ADALAT [Concomitant]
  7. FOSAMAX [Concomitant]
  8. HYDROCHLOROTHIAZIDE [Concomitant]
  9. NAPROXEN [Concomitant]

REACTIONS (2)
  - DRUG INEFFECTIVE [None]
  - INSOMNIA [None]
